FAERS Safety Report 11374330 (Version 1)
Quarter: 2015Q3

REPORT INFORMATION
  Report Type: Spontaneous
  Country: US (occurrence: None)
  Receive Date: 20150811
  Receipt Date: 20150811
  Transmission Date: 20151125
  Serious: Yes (Other)
  Sender: FDA-Public Use
  Company Number: 54973 AE # 1624

PATIENT
  Age: 90 Year
  Sex: Female

DRUGS (1)
  1. HYLAND^S RESTFUL LEGS TABLETS [Suspect]
     Active Substance: HOMEOPATHICS
     Dosage: 3 TABS  SL  Q2HRS  X 2 DOSE
     Route: 060

REACTIONS (3)
  - Blood pressure increased [None]
  - Heart rate increased [None]
  - Palpitations [None]

NARRATIVE: CASE EVENT DATE: 20150730
